FAERS Safety Report 9842808 (Version 1)
Quarter: 2013Q4

REPORT INFORMATION
  Report Type: Spontaneous
  Country: US (occurrence: None)
  Receive Date: 20131219
  Receipt Date: 20131219
  Transmission Date: 20140711
  Serious: Yes (Death)
  Sender: FDA-Public Use
  Company Number: 163-20785-13100160

PATIENT
  Age: 89 Year
  Sex: Female

DRUGS (4)
  1. THALOMID (THALIDOMIDE) (200 MILLIGRAM, CAPSULES) [Suspect]
     Indication: HYPERTENSION
     Dosage: 200 MG, 1 IN 1 D, PO
     Route: 048
     Dates: start: 200905
  2. PRO-STAT (PROTEIN SUPPLEMENTS) [Concomitant]
  3. PERCOCET (OXYCOCET) [Concomitant]
  4. CONSTULOSE (LACTULOSE) [Concomitant]

REACTIONS (1)
  - Death [None]
